FAERS Safety Report 16781073 (Version 2)
Quarter: 2019Q3

REPORT INFORMATION
  Report Type: Spontaneous
  Country: US (occurrence: US)
  Receive Date: 20190906
  Receipt Date: 20190912
  Transmission Date: 20191005
  Serious: No
  Sender: FDA-Public Use
  Company Number: US-SA-2019SA245629

PATIENT
  Age: 60 Year
  Sex: Female

DRUGS (2)
  1. DUPIXENT [Suspect]
     Active Substance: DUPILUMAB
     Indication: DERMATITIS ALLERGIC
     Dosage: 300 MG, QOW
     Route: 058
     Dates: start: 20190709
  2. OTEZLA [Concomitant]
     Active Substance: APREMILAST
     Indication: ECZEMA
     Dosage: UNK
     Dates: start: 201908

REACTIONS (5)
  - Gait disturbance [Unknown]
  - Skin fissures [Unknown]
  - Limb discomfort [Unknown]
  - Eczema [Unknown]
  - Skin atrophy [Unknown]
